FAERS Safety Report 24638620 (Version 3)
Quarter: 2024Q4

REPORT INFORMATION
  Report Type: Spontaneous
  Country: US (occurrence: US)
  Receive Date: 20241119
  Receipt Date: 20241203
  Transmission Date: 20250115
  Serious: Yes (Other)
  Sender: ROCHE
  Company Number: US-ROCHE-10000133817

PATIENT
  Sex: Female

DRUGS (1)
  1. OCREVUS [Suspect]
     Active Substance: OCRELIZUMAB
     Indication: Product used for unknown indication
     Route: 042

REACTIONS (4)
  - Multiple sclerosis [Unknown]
  - Multiple sclerosis relapse [Unknown]
  - B-lymphocyte count decreased [Unknown]
  - Drug ineffective [Unknown]
